FAERS Safety Report 8822360 (Version 1)
Quarter: 2012Q4

REPORT INFORMATION
  Report Type: 
  Country: US (occurrence: US)
  Receive Date: 20121003
  Receipt Date: 20121003
  Transmission Date: 20130627
  Serious: Yes (Hospitalization)
  Sender: FDA-Public Use
  Company Number: PHEH2012US019137

PATIENT
  Sex: Female

DRUGS (2)
  1. VIVELLE DOT [Suspect]
     Route: 062
     Dates: start: 2004
  2. CELEBREX [Concomitant]

REACTIONS (2)
  - Thermal burn [Unknown]
  - Thrombosis [Unknown]
